FAERS Safety Report 5346157-X (Version None)
Quarter: 2007Q2

REPORT INFORMATION
  Report Type: 
  Country: None (occurrence: None)
  Receive Date: 20070605
  Receipt Date: 20070528
  Transmission Date: 20071010
  Serious: Yes (Hospitalization)
  Sender: FDA-Public Use
  Company Number: KR-ASTRAZENECA-2007AP02492

PATIENT
  Age: 23834 Day
  Sex: Male
  Weight: 79 kg

DRUGS (12)
  1. IRESSA [Suspect]
     Indication: NON-SMALL CELL LUNG CANCER STAGE IV
     Route: 048
     Dates: start: 20070308, end: 20070419
  2. CLEXANE [Concomitant]
     Indication: ANTICOAGULANT THERAPY
     Route: 058
     Dates: start: 20070419
  3. VALPROATE SODIUM [Concomitant]
     Indication: CONVULSION
     Dates: start: 20070215
  4. VALPROATE SODIUM [Concomitant]
     Dates: start: 20070308
  5. DIAMICRON MR [Concomitant]
     Indication: DIABETES MELLITUS
     Dates: start: 20070101
  6. WARFARIN SODIUM [Concomitant]
     Indication: ANTICOAGULANT THERAPY
     Dosage: 1-3MG
     Dates: start: 20070412, end: 20070419
  7. GEMCITABINE [Concomitant]
     Dates: start: 20070105, end: 20070113
  8. GEMCITABINE [Concomitant]
     Dates: start: 20070125, end: 20070202
  9. GEMCITABINE [Concomitant]
     Dates: start: 20070216, end: 20070223
  10. CISPLATIN [Concomitant]
     Dates: start: 20070105, end: 20070113
  11. CISPLATIN [Concomitant]
     Dates: start: 20070125, end: 20070202
  12. CISPLATIN [Concomitant]
     Dates: start: 20070216, end: 20070223

REACTIONS (1)
  - INTERSTITIAL LUNG DISEASE [None]
